FAERS Safety Report 5429458-6 (Version None)
Quarter: 2007Q3

REPORT INFORMATION
  Report Type: 
  Country: None (occurrence: None)
  Receive Date: 20070829
  Receipt Date: 20070827
  Transmission Date: 20080115
  Serious: Yes (Hospitalization)
  Sender: FDA-Public Use
  Company Number: A0650336A

PATIENT
  Age: 73 Year
  Sex: Female
  Weight: 60.9 kg

DRUGS (2)
  1. TYKERB [Suspect]
     Indication: BREAST CANCER
     Dosage: 5TAB PER DAY
     Route: 048
     Dates: start: 20070413, end: 20070429
  2. XELODA [Concomitant]
     Dates: start: 20070413, end: 20070429

REACTIONS (6)
  - ASTHENIA [None]
  - DIARRHOEA [None]
  - FATIGUE [None]
  - HOSPITALISATION [None]
  - MALAISE [None]
  - MEMORY IMPAIRMENT [None]
